FAERS Safety Report 17075153 (Version 1)
Quarter: 2019Q4

REPORT INFORMATION
  Report Type: Spontaneous
  Country: CA (occurrence: CA)
  Receive Date: 20191126
  Receipt Date: 20191126
  Transmission Date: 20200122
  Serious: Yes (Life-Threatening)
  Sender: FDA-Public Use
  Company Number: CA-TEVA-2019-CA-1141710

PATIENT
  Age: 64 Year
  Sex: Male
  Weight: 78 kg

DRUGS (11)
  1. CO-TRIMOXAZOLE DS [Concomitant]
  2. RITUXIMAB GP2013 [Concomitant]
     Active Substance: RITUXIMAB
  3. VIAGRA [Concomitant]
     Active Substance: SILDENAFIL CITRATE
  4. RAMIPRIL. [Concomitant]
     Active Substance: RAMIPRIL
  5. SYNTHROID [Concomitant]
     Active Substance: LEVOTHYROXINE SODIUM
  6. TREANDA [Suspect]
     Active Substance: BENDAMUSTINE HYDROCHLORIDE
     Indication: MARGINAL ZONE LYMPHOMA
     Route: 042
  7. BIKTARVY [Concomitant]
     Active Substance: BICTEGRAVIR SODIUM\EMTRICITABINE\TENOFOVIR ALAFENAMIDE FUMARATE
  8. TREANDA [Suspect]
     Active Substance: BENDAMUSTINE HYDROCHLORIDE
     Route: 042
  9. SULFASALAZINE. [Concomitant]
     Active Substance: SULFASALAZINE
  10. FAMCICLOVIR. [Concomitant]
     Active Substance: FAMCICLOVIR
  11. NAPROXEN. [Concomitant]
     Active Substance: NAPROXEN

REACTIONS (3)
  - Acute kidney injury [Recovering/Resolving]
  - Haemodialysis [Recovering/Resolving]
  - Autoimmune haemolytic anaemia [Recovering/Resolving]
